FAERS Safety Report 10253001 (Version 1)
Quarter: 2014Q2

REPORT INFORMATION
  Report Type: Spontaneous
  Country: US (occurrence: None)
  Receive Date: 20140618
  Receipt Date: 20140618
  Transmission Date: 20141212
  Serious: No
  Sender: FDA-Public Use
  Company Number: None

PATIENT
  Age: 82 Year
  Sex: Male
  Weight: 90.72 kg

DRUGS (9)
  1. OMEPRAZOLE [Suspect]
     Indication: DYSPEPSIA
     Route: 048
     Dates: start: 2011, end: 20140501
  2. SYNTHROID [Concomitant]
  3. LANOTIN [Concomitant]
  4. PREDNIS [Concomitant]
  5. OXYCODONE [Concomitant]
  6. TEMAZEPAM [Concomitant]
  7. LISINOPRIL [Concomitant]
  8. DILTIAZEM [Concomitant]
  9. VIT/MIN TAB [Concomitant]

REACTIONS (5)
  - Dry skin [None]
  - Asthenia [None]
  - Bladder spasm [None]
  - Malaise [None]
  - Sleep disorder [None]
